FAERS Safety Report 18325626 (Version 26)
Quarter: 2024Q2

REPORT INFORMATION
  Report Type: Report from Study
  Country: CL (occurrence: CL)
  Receive Date: 20200929
  Receipt Date: 20240523
  Transmission Date: 20240716
  Serious: Yes (Hospitalization, Other)
  Sender: FDA-Public Use
  Company Number: NVSC2020CL059306

PATIENT
  Age: 55 Year
  Sex: Female

DRUGS (12)
  1. SANDOSTATIN LAR DEPOT [Suspect]
     Active Substance: OCTREOTIDE ACETATE
     Indication: Pituitary tumour
     Dosage: 20 MG, QMO (SOLUTION)
     Route: 030
     Dates: start: 20170801
  2. SANDOSTATIN LAR DEPOT [Suspect]
     Active Substance: OCTREOTIDE ACETATE
     Indication: Brain neoplasm
     Dosage: 20 MG (EVERY 45 DAYS (INJECTABLE SOLUTION))
     Route: 030
     Dates: start: 201708
  3. SANDOSTATIN LAR DEPOT [Suspect]
     Active Substance: OCTREOTIDE ACETATE
     Indication: Pituitary enlargement
     Dosage: 20 MG, (EVERY 45 DAYS (INJECTABLE SOLUTION/ AMPOULE))
     Route: 030
  4. SANDOSTATIN LAR DEPOT [Suspect]
     Active Substance: OCTREOTIDE ACETATE
     Indication: Neuroendocrine tumour
     Dosage: 20 MG, (EVERY 45 DAYS (INJECTABLE SOLUTION))
     Route: 030
     Dates: start: 201708
  5. SANDOSTATIN LAR DEPOT [Suspect]
     Active Substance: OCTREOTIDE ACETATE
     Indication: Acromegaly
     Dosage: 20 MG (EVERY 45 DAYS (INJECTABLE SOLUTION))
     Route: 030
  6. SANDOSTATIN LAR DEPOT [Suspect]
     Active Substance: OCTREOTIDE ACETATE
     Indication: Pituitary tumour benign
     Dosage: UNK
     Route: 065
     Dates: start: 20200319
  7. SANDOSTATIN LAR DEPOT [Suspect]
     Active Substance: OCTREOTIDE ACETATE
     Dosage: UNK
     Route: 065
     Dates: start: 20240213
  8. SANDOSTATIN LAR DEPOT [Suspect]
     Active Substance: OCTREOTIDE ACETATE
     Dosage: UNK
     Route: 065
     Dates: start: 20240328
  9. SANDOSTATIN LAR DEPOT [Suspect]
     Active Substance: OCTREOTIDE ACETATE
     Dosage: UNK
     Route: 065
  10. SANDOSTATIN LAR DEPOT [Suspect]
     Active Substance: OCTREOTIDE ACETATE
     Indication: Brain neoplasm
     Dosage: 20 MG (EVERY 45 DAYS)
     Route: 030
  11. SANDOSTATIN LAR DEPOT [Suspect]
     Active Substance: OCTREOTIDE ACETATE
     Indication: Pituitary tumour
  12. SANDOSTATIN LAR DEPOT [Suspect]
     Active Substance: OCTREOTIDE ACETATE
     Indication: Acromegaly

REACTIONS (38)
  - Cholelithiasis [Unknown]
  - Inflammation [Unknown]
  - Hepatitis [Unknown]
  - Cholecystitis [Unknown]
  - Colitis [Unknown]
  - Nephrolithiasis [Unknown]
  - Loss of consciousness [Unknown]
  - Arrhythmia [Unknown]
  - Cardiac failure [Unknown]
  - Illness [Unknown]
  - Stress [Unknown]
  - Decompression sickness [Unknown]
  - Fall [Unknown]
  - Photopsia [Unknown]
  - Depression [Unknown]
  - Headache [Unknown]
  - Vomiting [Unknown]
  - Dizziness [Unknown]
  - Neoplasm [Unknown]
  - Memory impairment [Unknown]
  - Malaise [Unknown]
  - Gait inability [Unknown]
  - Pyrexia [Unknown]
  - Ocular hyperaemia [Unknown]
  - Ill-defined disorder [Unknown]
  - Blepharitis [Unknown]
  - Adenoma benign [Recovering/Resolving]
  - Thinking abnormal [Unknown]
  - Dysphonia [Unknown]
  - Nasopharyngitis [Unknown]
  - Growth disorder [Unknown]
  - Throat clearing [Unknown]
  - Synovial cyst [Unknown]
  - Urine abnormality [Unknown]
  - Rib deformity [Unknown]
  - Injection site reaction [Unknown]
  - Wrong product administered [Unknown]
  - Inappropriate schedule of product administration [Unknown]

NARRATIVE: CASE EVENT DATE: 20170801
